FAERS Safety Report 17684962 (Version 1)
Quarter: 2020Q2

REPORT INFORMATION
  Report Type: Report from Study
  Country: GB (occurrence: GB)
  Receive Date: 20200420
  Receipt Date: 20200420
  Transmission Date: 20200714
  Serious: Yes (Hospitalization)
  Sender: FDA-Public Use
  Company Number: GB-BAYER-2020-061755

PATIENT
  Age: 65 Year
  Sex: Male

DRUGS (18)
  1. DALTEPARIN [Concomitant]
     Active Substance: DALTEPARIN
     Indication: THROMBOSIS
     Dosage: 7500 IU
     Dates: start: 20191227
  2. SENNOSIDE [SENNOSIDE A+B] [Concomitant]
     Active Substance: SENNOSIDES A AND B
     Indication: CONSTIPATION
     Dosage: UNK
     Dates: start: 20191210
  3. MTL CEBPA [Suspect]
     Active Substance: CEBPA-51 FREE ACID
     Indication: HEPATOCELLULAR CARCINOMA
     Dosage: DAILY DOSE 250 ML (C1D15)
     Route: 042
     Dates: start: 20200114, end: 20200114
  4. CANNABIS [Concomitant]
     Active Substance: CANNABIS SATIVA SUBSP. INDICA TOP
     Indication: SUBSTANCE USE
     Dosage: UNK
     Dates: start: 1966
  5. SORAFENIB (RAF KINASE INHIBITOR) [Suspect]
     Active Substance: SORAFENIB
     Indication: HEPATOCELLULAR CARCINOMA
     Dosage: 800 MG, QD
     Route: 048
     Dates: start: 20191212, end: 20191223
  6. MTL CEBPA [Suspect]
     Active Substance: CEBPA-51 FREE ACID
     Indication: HEPATOCELLULAR CARCINOMA
     Dosage: DAILY DOSE 250 ML ONCE WEEKLY (C1D1)
     Route: 042
     Dates: start: 20191126, end: 20191126
  7. DOCUSATE SODIUM. [Concomitant]
     Active Substance: DOCUSATE SODIUM
     Indication: CONSTIPATION
     Dosage: UNK
     Dates: start: 20191110
  8. ORAMORPH SR SUSTAINED RELEASE [Concomitant]
     Active Substance: MORPHINE SULFATE
     Indication: PAIN
     Dosage: UNK
     Dates: start: 20191216
  9. DEXAMETHASONE. [Concomitant]
     Active Substance: DEXAMETHASONE
     Indication: INFUSION RELATED REACTION
  10. SORAFENIB (RAF KINASE INHIBITOR) [Suspect]
     Active Substance: SORAFENIB
     Indication: HEPATOCELLULAR CARCINOMA
     Dosage: 800 MG, QD
     Route: 048
     Dates: start: 20191126, end: 20191129
  11. PARACETAMOL [Concomitant]
     Active Substance: ACETAMINOPHEN
     Indication: PAIN
     Dosage: UNK
     Dates: start: 20190910
  12. CALOGEN [CALCITONIN, SALMON] [Concomitant]
     Indication: DECREASED APPETITE
     Dosage: UNK
     Dates: start: 20191029
  13. SCANDISHAKE MIX [Concomitant]
     Active Substance: DIETARY SUPPLEMENT
     Indication: DECREASED APPETITE
     Dosage: UNK
     Dates: start: 20191029
  14. DEXAMETHASONE. [Concomitant]
     Active Substance: DEXAMETHASONE
     Indication: INFUSION RELATED REACTION
     Dosage: 20 MG
     Route: 042
     Dates: start: 20190114
  15. MTL CEBPA [Suspect]
     Active Substance: CEBPA-51 FREE ACID
     Indication: HEPATOCELLULAR CARCINOMA
     Dosage: TOTAL VOLUME WAS NOT ADMINISTERED (C1D8)
     Route: 042
     Dates: start: 20191217, end: 20191217
  16. MORPHINE SULFATE. [Concomitant]
     Active Substance: MORPHINE SULFATE
     Indication: ANALGESIC THERAPY
     Dosage: UNK
     Dates: start: 20100107
  17. SORAFENIB (RAF KINASE INHIBITOR) [Suspect]
     Active Substance: SORAFENIB
     Indication: HEPATOCELLULAR CARCINOMA
     Dosage: 800 MG, QD
     Route: 048
     Dates: start: 20200113, end: 20200124
  18. NYSTATIN. [Concomitant]
     Active Substance: NYSTATIN
     Indication: ORAL CANDIDIASIS
     Dosage: UNK
     Dates: start: 20200107

REACTIONS (1)
  - Pulmonary embolism [Recovered/Resolved]

NARRATIVE: CASE EVENT DATE: 20200124
